FAERS Safety Report 12847094 (Version 1)
Quarter: 2016Q4

REPORT INFORMATION
  Report Type: Spontaneous
  Country: US (occurrence: US)
  Receive Date: 20161014
  Receipt Date: 20161014
  Transmission Date: 20170207
  Serious: No
  Sender: FDA-Public Use
  Company Number: US-WEST-WARD PHARMACEUTICALS CORP.-US-H14001-16-00440

PATIENT
  Age: 3 Year
  Sex: Female
  Weight: 14.2 kg

DRUGS (50)
  1. METHOTREXATE. [Suspect]
     Active Substance: METHOTREXATE
     Route: 037
     Dates: start: 20160113, end: 20160113
  2. HYDROCORTISONE. [Concomitant]
     Active Substance: HYDROCORTISONE
     Indication: CHEMOTHERAPY
     Route: 037
     Dates: start: 20160106, end: 20160106
  3. DIPHENHYDRAMINE. [Concomitant]
     Active Substance: DIPHENHYDRAMINE
     Indication: HYPERSENSITIVITY
     Route: 042
     Dates: start: 20160101
  4. DOCUSATE SYRUP [Concomitant]
     Indication: CONSTIPATION
     Dosage: 20 MG/24 HRS
     Route: 048
     Dates: start: 20160103, end: 20160108
  5. GADOBUTROL [Concomitant]
     Active Substance: GADOBUTROL
     Indication: NUCLEAR MAGNETIC RESONANCE IMAGING
     Dosage: 0.05 ML/KG
     Route: 042
     Dates: start: 20160113, end: 20160113
  6. NOREPINEPHRINE [Concomitant]
     Active Substance: NOREPINEPHRINE\NOREPINEPHRINE BITARTRATE
     Indication: SEPTIC SHOCK
     Dosage: 0.02 MCG/KG/MIN
     Route: 042
     Dates: start: 20160118, end: 20160118
  7. DEXAMETHASONE. [Concomitant]
     Active Substance: DEXAMETHASONE
     Route: 042
     Dates: start: 20160109, end: 20160109
  8. DEXAMETHASONE. [Concomitant]
     Active Substance: DEXAMETHASONE
     Route: 042
     Dates: start: 20160110, end: 20160110
  9. COTRIMOXAZOLE [Concomitant]
     Active Substance: SULFAMETHOXAZOLE\TRIMETHOPRIM
     Indication: INFECTION PROPHYLAXIS
     Route: 048
     Dates: start: 20160104, end: 20160105
  10. OXYCODONE [Concomitant]
     Active Substance: OXYCODONE
     Indication: PAIN
     Route: 048
     Dates: start: 20160114, end: 20160114
  11. CYTARABINE. [Concomitant]
     Active Substance: CYTARABINE
     Route: 042
     Dates: start: 20160108, end: 20160109
  12. DEXAMETHASONE. [Concomitant]
     Active Substance: DEXAMETHASONE
     Route: 042
     Dates: start: 20160110, end: 20160112
  13. LORAZEPAM. [Concomitant]
     Active Substance: LORAZEPAM
     Indication: NAUSEA
     Route: 042
     Dates: start: 20160101
  14. LORAZEPAM. [Concomitant]
     Active Substance: LORAZEPAM
     Route: 042
     Dates: start: 20160106, end: 20160106
  15. PREDNISOLONE ACETATE. [Concomitant]
     Active Substance: PREDNISOLONE ACETATE
     Indication: EYE PAIN
     Route: 047
     Dates: start: 20160108, end: 20160110
  16. FLUCONAZOLE. [Concomitant]
     Active Substance: FLUCONAZOLE
     Indication: INFECTION PROPHYLAXIS
     Route: 048
     Dates: start: 20160110
  17. LINEZOLID. [Concomitant]
     Active Substance: LINEZOLID
     Indication: INFECTION PROPHYLAXIS
     Route: 042
     Dates: start: 20160112, end: 20160114
  18. MORPHINE [Concomitant]
     Active Substance: MORPHINE
     Indication: PAIN
     Route: 042
     Dates: start: 20160112, end: 20160112
  19. DEXAMETHASONE. [Concomitant]
     Active Substance: DEXAMETHASONE
     Indication: BRAIN OEDEMA
     Route: 042
     Dates: start: 20151231, end: 20160108
  20. DEXAMETHASONE. [Concomitant]
     Active Substance: DEXAMETHASONE
     Route: 042
     Dates: start: 20160110, end: 20160111
  21. DEXAMETHASONE. [Concomitant]
     Active Substance: DEXAMETHASONE
     Route: 042
     Dates: start: 20160112, end: 20160112
  22. DEXAMETHASONE. [Concomitant]
     Active Substance: DEXAMETHASONE
     Route: 042
     Dates: start: 20160114, end: 20160114
  23. ACETAMINOPHEN. [Concomitant]
     Active Substance: ACETAMINOPHEN
     Indication: PAIN
     Route: 048
     Dates: start: 20151231
  24. ACETAMINOPHEN. [Concomitant]
     Active Substance: ACETAMINOPHEN
     Route: 048
     Dates: start: 20160110, end: 20160110
  25. DEXAMETHASONE. [Concomitant]
     Active Substance: DEXAMETHASONE
     Route: 042
     Dates: start: 20160114, end: 20160114
  26. ONDANSETRON [Concomitant]
     Active Substance: ONDANSETRON
     Indication: NAUSEA
     Route: 042
     Dates: start: 20160101
  27. COTRIMOXAZOLE [Concomitant]
     Active Substance: SULFAMETHOXAZOLE\TRIMETHOPRIM
     Dates: start: 20160118
  28. CEFEPIME [Concomitant]
     Active Substance: CEFEPIME HYDROCHLORIDE
     Indication: INFECTION PROPHYLAXIS
     Route: 042
     Dates: start: 20160112, end: 20160114
  29. CYTARABINE. [Concomitant]
     Active Substance: CYTARABINE
     Indication: CHEMOTHERAPY
     Route: 037
     Dates: start: 20160106, end: 20160106
  30. DEXAMETHASONE. [Concomitant]
     Active Substance: DEXAMETHASONE
     Route: 042
     Dates: start: 20160111, end: 20160111
  31. COTRIMOXAZOLE [Concomitant]
     Active Substance: SULFAMETHOXAZOLE\TRIMETHOPRIM
     Dates: start: 20160111, end: 20160112
  32. COTRIMOXAZOLE [Concomitant]
     Active Substance: SULFAMETHOXAZOLE\TRIMETHOPRIM
     Route: 048
     Dates: start: 20160113, end: 20160113
  33. SODIUM CHLORIDE. [Concomitant]
     Active Substance: SODIUM CHLORIDE
     Indication: DEHYDRATION
     Dosage: 20 ML/KG
     Route: 040
     Dates: start: 20160108, end: 20160108
  34. GENTAMICIN. [Concomitant]
     Active Substance: GENTAMICIN
     Indication: INFECTION PROPHYLAXIS
     Route: 042
     Dates: start: 20160112, end: 20160114
  35. NOREPINEPHRINE [Concomitant]
     Active Substance: NOREPINEPHRINE\NOREPINEPHRINE BITARTRATE
     Indication: HYPOTENSION
     Dosage: 0.08 MCG/KG/MIN
     Route: 042
     Dates: start: 20160117, end: 20160118
  36. PAPAVERINE [Concomitant]
     Active Substance: PAPAVERINE
     Indication: HYPOTENSION
     Dosage: 2 ML/HR
     Route: 013
     Dates: start: 20160117, end: 20160122
  37. PAPAVERINE [Concomitant]
     Active Substance: PAPAVERINE
     Indication: SEPTIC SHOCK
  38. PANTOPRAZOLE [Concomitant]
     Active Substance: PANTOPRAZOLE SODIUM
     Indication: SEPSIS
     Dosage: 1 MG/KG/24 HRS
     Route: 042
     Dates: start: 20160117
  39. METHOTREXATE. [Suspect]
     Active Substance: METHOTREXATE
     Indication: CHEMOTHERAPY
     Route: 037
     Dates: start: 20160106, end: 20160106
  40. CYTARABINE. [Concomitant]
     Active Substance: CYTARABINE
     Route: 037
     Dates: start: 20160113, end: 20160113
  41. HYDROCORTISONE. [Concomitant]
     Active Substance: HYDROCORTISONE
     Route: 037
     Dates: start: 20160113, end: 20160113
  42. RANITIDINE. [Concomitant]
     Active Substance: RANITIDINE
     Indication: HYPERSENSITIVITY
     Route: 042
     Dates: start: 20151230
  43. DEXAMETHASONE. [Concomitant]
     Active Substance: DEXAMETHASONE
     Route: 042
     Dates: start: 20160115, end: 20160115
  44. ERWINIA ASPARAGINASE [Concomitant]
     Active Substance: ASPARAGINASE ERWINIA CHRYSANTHEMI
     Indication: CHEMOTHERAPY
     Dosage: 25000 UNITS/M2
     Route: 042
     Dates: start: 20160109, end: 20160109
  45. MYLOTARG [Suspect]
     Active Substance: GEMTUZUMAB OZOGAMICIN
     Indication: CHEMOTHERAPY
     Route: 042
     Dates: start: 20160110, end: 20160110
  46. DIPHENHYDRAMINE. [Concomitant]
     Active Substance: DIPHENHYDRAMINE
     Indication: NAUSEA
     Route: 042
     Dates: start: 20160110, end: 20160110
  47. IMMUNE GLOBULIN [Concomitant]
     Active Substance: HUMAN IMMUNOGLOBULIN G
     Indication: HYPOGAMMAGLOBULINAEMIA
     Route: 042
     Dates: start: 20160113, end: 20160113
  48. LACTATED RINGERS INFUSION [Concomitant]
     Indication: DEHYDRATION
     Route: 042
     Dates: start: 20160113, end: 20160113
  49. LEVETIRACETAM. [Concomitant]
     Active Substance: LEVETIRACETAM
     Indication: SEIZURE
     Route: 042
     Dates: start: 20160117
  50. FILGRASTIM [Concomitant]
     Active Substance: FILGRASTIM
     Indication: BONE MARROW FAILURE
     Dosage: 5 MCG/KG
     Route: 042
     Dates: start: 20160118

REACTIONS (2)
  - Toxicity to various agents [Unknown]
  - Mental status changes [Recovering/Resolving]

NARRATIVE: CASE EVENT DATE: 20160119
